FAERS Safety Report 8351630-6 (Version None)
Quarter: 2012Q2

REPORT INFORMATION
  Report Type: 
  Country: None (occurrence: None)
  Receive Date: 20120511
  Receipt Date: 20120501
  Transmission Date: 20120825
  Serious: No
  Sender: FDA-Public Use
  Company Number: US-BIOGENIDEC-2012BI013347

PATIENT
  Age: 44 Year
  Sex: Female

DRUGS (1)
  1. TYSABRI [Suspect]
     Indication: MULTIPLE SCLEROSIS
     Route: 042
     Dates: start: 20100303

REACTIONS (9)
  - CONFUSIONAL STATE [None]
  - HALLUCINATION [None]
  - MULTIPLE SCLEROSIS RELAPSE [None]
  - PAIN [None]
  - MENTAL IMPAIRMENT [None]
  - DYSGRAPHIA [None]
  - HEADACHE [None]
  - FATIGUE [None]
  - POST LUMBAR PUNCTURE SYNDROME [None]
